FAERS Safety Report 9429270 (Version 1)
Quarter: 2013Q3

REPORT INFORMATION
  Report Type: Spontaneous
  Country: GB (occurrence: GB)
  Receive Date: 20130730
  Receipt Date: 20130730
  Transmission Date: 20140515
  Serious: Yes (Hospitalization)
  Sender: FDA-Public Use
  Company Number: GB-TEVA-420142ISR

PATIENT
  Age: 81 Year
  Sex: Male

DRUGS (7)
  1. IRBESARTAN [Suspect]
     Route: 048
     Dates: end: 20130612
  2. BENDROFLUMETHIAZIDE [Suspect]
     Route: 048
     Dates: end: 20130612
  3. BISOPROLOL [Concomitant]
     Dosage: ONE IN THE MORNING.
  4. WARFARIN [Concomitant]
  5. OMEPRAZOLE [Concomitant]
     Dosage: ONE IN THE MORNING.
  6. SIMVASTATIN [Concomitant]
     Dosage: ONE AT NIGHT.
  7. CALCICHEW D3 [Concomitant]

REACTIONS (4)
  - Renal failure acute [Recovered/Resolved]
  - Dehydration [Unknown]
  - Diarrhoea [Unknown]
  - Vomiting [Unknown]
